FAERS Safety Report 6919185-8 (Version None)
Quarter: 2010Q3

REPORT INFORMATION
  Report Type: 
  Country: None (occurrence: None)
  Receive Date: 20100811
  Receipt Date: 20100802
  Transmission Date: 20110219
  Serious: Yes (Other)
  Sender: FDA-Public Use
  Company Number: US-PFIZER INC-2010087232

PATIENT
  Age: 74 Year
  Sex: Male

DRUGS (19)
  1. LIPITOR [Suspect]
     Dosage: UNK
  2. LASIX [Suspect]
     Indication: HYPERTENSION
     Dosage: 20 MG, DAILY
     Route: 048
     Dates: start: 19970101, end: 20100601
  3. LASIX [Suspect]
     Indication: OEDEMA PERIPHERAL
     Dosage: UNK, AS NEEDED
     Route: 048
     Dates: start: 20100616
  4. DIGOXIN [Suspect]
     Dosage: UNK
  5. COUMADIN [Suspect]
     Dosage: UNK
  6. POTASSIUM [Suspect]
     Dosage: UNK
  7. MULTAQ [Concomitant]
  8. FLUDROCORTISONE [Concomitant]
  9. COMPAZINE [Concomitant]
  10. ZOLOFT [Concomitant]
  11. ATENOLOL [Concomitant]
  12. OXYCODONE [Concomitant]
  13. FENTANYL [Concomitant]
  14. FINASTERIDE [Concomitant]
  15. ZOFRAN [Concomitant]
  16. MULTI-VITAMINS [Concomitant]
  17. IRON [Concomitant]
  18. CYANOCOBALAMIN [Concomitant]
  19. LYRICA [Concomitant]

REACTIONS (5)
  - ASTHENIA [None]
  - BLOOD GLUCOSE DECREASED [None]
  - GASTROINTESTINAL DISORDER [None]
  - HYPOTENSION [None]
  - LOSS OF CONSCIOUSNESS [None]
